FAERS Safety Report 6354130-8 (Version None)
Quarter: 2009Q3

REPORT INFORMATION
  Report Type: 
  Country: None (occurrence: None)
  Receive Date: 20090914
  Receipt Date: 20090908
  Transmission Date: 20100115
  Serious: Yes (Other)
  Sender: FDA-Public Use
  Company Number: US-BAYER-200926253NA

PATIENT
  Age: 32 Year
  Sex: Female
  Weight: 77 kg

DRUGS (1)
  1. MIRENA [Suspect]
     Indication: CONTRACEPTION
     Dosage: CONTINUOUS
     Route: 015
     Dates: start: 20080911, end: 20090901

REACTIONS (4)
  - ABDOMINAL PAIN [None]
  - AMENORRHOEA [None]
  - GALLBLADDER DISORDER [None]
  - VAGINAL HAEMORRHAGE [None]
